FAERS Safety Report 7541993-3 (Version None)
Quarter: 2011Q2

REPORT INFORMATION
  Report Type: 
  Country: None (occurrence: None)
  Receive Date: 20110607
  Receipt Date: 20110526
  Transmission Date: 20111010
  Serious: Yes (Death, Hospitalization)
  Sender: FDA-Public Use
  Company Number: GB-ACCORD-009042

PATIENT
  Age: 9 Year
  Sex: Male

DRUGS (5)
  1. THIOPENTONE (THIOPENTONE) [Concomitant]
  2. LEVETIRACETAM [Suspect]
  3. LAMOTRIGAINE (LAMOTRIGINE) [Suspect]
  4. DIAZEPAM [Concomitant]
  5. VITAMIN K TAB [Concomitant]

REACTIONS (19)
  - FEBRILE CONVULSION [None]
  - PARTIAL SEIZURES [None]
  - METABOLIC ACIDOSIS [None]
  - NEUROLOGICAL DECOMPENSATION [None]
  - CARDIO-RESPIRATORY ARREST [None]
  - APHASIA [None]
  - CHOREOATHETOSIS [None]
  - GRAND MAL CONVULSION [None]
  - HYPERPYREXIA [None]
  - MOVEMENT DISORDER [None]
  - DEVELOPMENTAL DELAY [None]
  - CEREBRAL ATROPHY [None]
  - RHABDOMYOLYSIS [None]
  - HEPATORENAL FAILURE [None]
  - AUTISM SPECTRUM DISORDER [None]
  - DYSTONIA [None]
  - ENCEPHALOPATHY [None]
  - STATUS EPILEPTICUS [None]
  - CONVULSION [None]
